FAERS Safety Report 14307448 (Version 1)
Quarter: 2017Q4

REPORT INFORMATION
  Report Type: Spontaneous
  Country: US (occurrence: US)
  Receive Date: 20171219
  Receipt Date: 20171219
  Transmission Date: 20180321
  Serious: Yes (Life-Threatening, Hospitalization)
  Sender: FDA-Public Use
  Company Number: None

PATIENT
  Age: 66 Year
  Sex: Female
  Weight: 72 kg

DRUGS (1)
  1. ISOSULFAN BLUE INJECTION 1%(50MG/5ML) SINGLE-DOSE VIALS [Suspect]
     Active Substance: ISOSULFAN BLUE
     Indication: SURGERY
     Dosage: ?          OTHER FREQUENCY:ONE TIME INJECTION;?
     Route: 058
     Dates: start: 20171214, end: 20171214

REACTIONS (11)
  - Hypotension [None]
  - Shock [None]
  - Anaphylactic reaction [None]
  - Cardio-respiratory arrest [None]
  - Amnesia [None]
  - Pulse absent [None]
  - Hypovolaemia [None]
  - Unresponsive to stimuli [None]
  - Electrocardiogram ST segment elevation [None]
  - Sinus tachycardia [None]
  - Vasospasm [None]

NARRATIVE: CASE EVENT DATE: 20171214
